FAERS Safety Report 9425440 (Version 1)
Quarter: 2013Q3

REPORT INFORMATION
  Report Type: Spontaneous
  Country: US (occurrence: US)
  Receive Date: 20130729
  Receipt Date: 20130729
  Transmission Date: 20140515
  Serious: No
  Sender: FDA-Public Use
  Company Number: US-009507513-1307USA015770

PATIENT
  Sex: 0

DRUGS (2)
  1. AFRIN SPRAY [Suspect]
     Indication: UPPER RESPIRATORY TRACT CONGESTION
     Dosage: UNK, UNKNOWN
     Route: 045
  2. AFRIN SPRAY [Suspect]
     Indication: MEDICAL OBSERVATION

REACTIONS (1)
  - Condition aggravated [Unknown]
